FAERS Safety Report 16856432 (Version 3)
Quarter: 2023Q4

REPORT INFORMATION
  Report Type: Other
  Country: FR (occurrence: FR)
  Receive Date: 20190926
  Receipt Date: 20231108
  Transmission Date: 20240109
  Serious: Yes (Hospitalization)
  Sender: FDA-Public Use
  Company Number: FR-ROCHE-2417107

PATIENT
  Age: 69 Year
  Sex: Female
  Weight: 63 kg

DRUGS (16)
  1. MABTHERA [Suspect]
     Active Substance: RITUXIMAB
     Indication: Polyarthritis
     Dosage: UNK UNK,1X
     Route: 041
  2. ARAVA [Suspect]
     Active Substance: LEFLUNOMIDE
     Indication: Polyarthritis
     Dosage: 20 MG,QD
     Route: 048
  3. PREDNISONE [Suspect]
     Active Substance: PREDNISONE
     Indication: Polyarthritis
     Dosage: 5 MG,QD
     Route: 048
  4. METHOTREXATE [Suspect]
     Active Substance: METHOTREXATE
     Indication: Rheumatoid arthritis
     Route: 065
  5. ESTRADIOL [Suspect]
     Active Substance: ESTRADIOL
     Indication: Oestrogen replacement therapy
     Dosage: 25 UG, QOW
     Route: 062
  6. ACETAMINOPHEN [Suspect]
     Active Substance: ACETAMINOPHEN
     Indication: Product used for unknown indication
     Dosage: 3 DF, QD
     Route: 048
  7. VALSARTAN [Suspect]
     Active Substance: VALSARTAN
     Indication: Hypertension
     Dosage: 80 MG
     Route: 048
  8. ACTONEL [Suspect]
     Active Substance: RISEDRONATE SODIUM
     Indication: Product used for unknown indication
     Route: 048
     Dates: start: 2006, end: 2009
  9. VITAMIN D3 [Suspect]
     Active Substance: CHOLECALCIFEROL
     Indication: Product used for unknown indication
     Dosage: 0.25 IU
     Route: 048
  10. HYDROXYCHLOROQUINE [Concomitant]
     Active Substance: HYDROXYCHLOROQUINE
  11. DAFALGAN [Concomitant]
     Active Substance: ACETAMINOPHEN
     Indication: Rheumatoid arthritis
     Dosage: UNK UNK,TID
  12. OROCAL [Concomitant]
     Dosage: UNK UNK,QD
  13. OFLOXACIN [Concomitant]
     Active Substance: OFLOXACIN
     Dosage: UNK
     Route: 048
     Dates: start: 20100820, end: 20100823
  14. VALSARTAN [Concomitant]
     Active Substance: VALSARTAN
     Dosage: 80 MG,QD
     Route: 048
  15. INFLIXIMAB [Concomitant]
     Active Substance: INFLIXIMAB
  16. VALACYCLOVIR HYDROCHLORIDE [Concomitant]
     Active Substance: VALACYCLOVIR HYDROCHLORIDE
     Indication: Oral herpes
     Dosage: 500 MG,BID
     Route: 048
     Dates: start: 20100820

REACTIONS (5)
  - Acute kidney injury [Unknown]
  - Oral herpes [Recovered/Resolved]
  - Periodontal disease [Unknown]
  - Osteonecrosis of jaw [Unknown]
  - Gastroenteritis [Unknown]

NARRATIVE: CASE EVENT DATE: 20100722
